APPROVED DRUG PRODUCT: NYSTATIN TRIAMCINOLONE ACETONIDE
Active Ingredient: NYSTATIN; TRIAMCINOLONE ACETONIDE
Strength: 100,000 UNITS/GM;0.1%
Dosage Form/Route: CREAM;TOPICAL
Application: A062596 | Product #001
Applicant: PHARMADERM DIV ALTANA INC
Approved: Oct 8, 1985 | RLD: No | RS: No | Type: DISCN